FAERS Safety Report 13639019 (Version 5)
Quarter: 2018Q1

REPORT INFORMATION
  Report Type: Report from Study
  Country: US (occurrence: US)
  Receive Date: 20170609
  Receipt Date: 20180206
  Transmission Date: 20180508
  Serious: Yes (Other)
  Sender: FDA-Public Use
  Company Number: US-JAZZ-2017-US-007070

PATIENT
  Sex: Female

DRUGS (4)
  1. XYREM [Suspect]
     Active Substance: SODIUM OXYBATE
     Indication: NARCOLEPSY
     Dosage: 2.25 G, BID
     Route: 048
     Dates: start: 201705, end: 2017
  2. XYREM [Suspect]
     Active Substance: SODIUM OXYBATE
     Indication: CATAPLEXY
     Dosage: 3.25 G, QD
     Route: 048
     Dates: start: 2017, end: 2017
  3. XYREM [Suspect]
     Active Substance: SODIUM OXYBATE
     Dosage: 3.5 G, QD
     Route: 048
     Dates: start: 2017
  4. ZOLOFT [Suspect]
     Active Substance: SERTRALINE HYDROCHLORIDE
     Indication: PRODUCT USED FOR UNKNOWN INDICATION

REACTIONS (10)
  - Gastrointestinal sounds abnormal [Unknown]
  - Lower respiratory tract infection viral [Unknown]
  - Condition aggravated [Not Recovered/Not Resolved]
  - Weight increased [Unknown]
  - Euphoric mood [Unknown]
  - Diarrhoea [Unknown]
  - Headache [Unknown]
  - Vertigo [Unknown]
  - Nausea [Unknown]
  - Snoring [Not Recovered/Not Resolved]

NARRATIVE: CASE EVENT DATE: 2017
